FAERS Safety Report 6149019-3 (Version None)
Quarter: 2009Q2

REPORT INFORMATION
  Report Type: 
  Country: None (occurrence: None)
  Receive Date: 20090409
  Receipt Date: 20090403
  Transmission Date: 20091009
  Serious: Yes (Death)
  Sender: FDA-Public Use
  Company Number: GB-TEVA-190573ISR

PATIENT
  Age: 41 Year
  Sex: Female
  Weight: 72 kg

DRUGS (1)
  1. CITALOPRAM HYDROBROMIDE [Suspect]
     Indication: DEPRESSION
     Route: 048
     Dates: start: 20081101, end: 20081201

REACTIONS (3)
  - MALAISE [None]
  - RASH [None]
  - SUDDEN DEATH [None]
